FAERS Safety Report 12157248 (Version 1)
Quarter: 2016Q1

REPORT INFORMATION
  Report Type: Spontaneous
  Country: PH (occurrence: PH)
  Receive Date: 20160308
  Receipt Date: 20160308
  Transmission Date: 20160526
  Serious: Yes (Other)
  Sender: FDA-Public Use
  Company Number: PH-HOSPIRA-3195121

PATIENT
  Sex: Male

DRUGS (3)
  1. DEXTROSE IN WATER [Suspect]
     Active Substance: DEXTROSE\WATER
     Indication: PRODUCT USED FOR UNKNOWN INDICATION
     Route: 041
     Dates: start: 20140903
  2. LEVOPHED [Suspect]
     Active Substance: NOREPINEPHRINE BITARTRATE
     Indication: HYPOTENSION
     Dosage: TITRATE TO MAINTAIN SBP 100MMHG AND ABOVE
     Route: 041
     Dates: start: 20140903
  3. MEROMAX [Suspect]
     Active Substance: MEROPENEM
     Indication: PRODUCT USED FOR UNKNOWN INDICATION
     Dosage: 1G VIAL
     Route: 041
     Dates: start: 20140825

REACTIONS (2)
  - Pyrexia [Unknown]
  - Phlebitis [Unknown]

NARRATIVE: CASE EVENT DATE: 20140904
